FAERS Safety Report 5982352-4 (Version None)
Quarter: 2008Q4

REPORT INFORMATION
  Report Type: 
  Country: None (occurrence: None)
  Receive Date: 20081208
  Receipt Date: 20081201
  Transmission Date: 20090506
  Serious: Yes (Death, Other)
  Sender: FDA-Public Use
  Company Number: US-BIOGENIDEC-2008BI017515

PATIENT
  Sex: Female
  Weight: 49 kg

DRUGS (20)
  1. TYSABRI [Suspect]
     Indication: MULTIPLE SCLEROSIS
     Route: 042
     Dates: start: 20080228, end: 20080522
  2. HYDROCHLOROTHIAZIDE [Concomitant]
     Indication: DRUG USE FOR UNKNOWN INDICATION
  3. SINGULAIR [Concomitant]
     Indication: ASTHMA
  4. GABAPENTIN [Concomitant]
     Indication: DRUG USE FOR UNKNOWN INDICATION
  5. NEXIUM [Concomitant]
     Indication: DRUG USE FOR UNKNOWN INDICATION
  6. DILATIZEM [Concomitant]
     Indication: CARDIAC DISORDER
  7. LORATADINE [Concomitant]
     Indication: MULTIPLE ALLERGIES
  8. PRAVACHOL [Concomitant]
     Indication: BLOOD CHOLESTEROL
  9. LORAZEPAM [Concomitant]
     Indication: ANXIETY
  10. NITROGLYCERIN [Concomitant]
     Indication: CARDIAC DISORDER
  11. LEXAPRO [Concomitant]
     Indication: DEPRESSION
  12. ZETIA [Concomitant]
     Indication: BLOOD CHOLESTEROL
  13. AMADOR [Concomitant]
     Indication: DRUG USE FOR UNKNOWN INDICATION
  14. ALBUTEROL [Concomitant]
     Indication: ASTHMA
  15. PREMARIN [Concomitant]
     Indication: MENOPAUSAL SYMPTOMS
  16. CLINDAMYCIN HCL [Concomitant]
     Indication: DENTAL CARE
  17. VICODIN [Concomitant]
     Indication: PAIN
  18. NASONEX [Concomitant]
     Indication: MULTIPLE ALLERGIES
  19. VAGIFEM [Concomitant]
  20. FUROSEMIDE [Concomitant]

REACTIONS (1)
  - LUNG CANCER METASTATIC [None]
